FAERS Safety Report 12644523 (Version 3)
Quarter: 2016Q3

REPORT INFORMATION
  Report Type: Spontaneous
  Country: GB (occurrence: GB)
  Receive Date: 20160811
  Receipt Date: 20160920
  Transmission Date: 20161109
  Serious: No
  Sender: FDA-Public Use
  Company Number: GB-PFIZER INC-2016369844

PATIENT
  Age: 70 Year
  Sex: Male

DRUGS (5)
  1. INLYTA [Suspect]
     Active Substance: AXITINIB
     Dosage: 6 MG AM AND 7 MG PM
     Dates: start: 20131220, end: 20160424
  2. INLYTA [Suspect]
     Active Substance: AXITINIB
     Indication: METASTATIC RENAL CELL CARCINOMA
     Dosage: 6 MG AM AND 7 MG PM
     Dates: start: 20131220, end: 20160424
  3. AMLODIPINE [Concomitant]
     Active Substance: AMLODIPINE BESYLATE
     Indication: BLOOD PRESSURE ABNORMAL
     Dosage: UNK
     Dates: start: 20131220, end: 20160424
  4. ATORVASTATIN [Concomitant]
     Active Substance: ATORVASTATIN
     Dosage: UNK
     Dates: end: 20160424
  5. ASPIRIN (E.C.) [Suspect]
     Active Substance: ASPIRIN
     Indication: COLLATERAL CIRCULATION
     Dosage: 75 MG, UNK
     Dates: start: 201509, end: 20160424

REACTIONS (2)
  - Metastatic renal cell carcinoma [Unknown]
  - Disease progression [Unknown]
